FAERS Safety Report 12940401 (Version 1)
Quarter: 2016Q4

REPORT INFORMATION
  Report Type: Spontaneous
  Country: GB (occurrence: GB)
  Receive Date: 20161115
  Receipt Date: 20161115
  Transmission Date: 20170207
  Serious: Yes (Other)
  Sender: FDA-Public Use
  Company Number: GB-AUROBINDO-AUR-APL-2016-13740

PATIENT
  Age: 18 Year
  Sex: Male
  Weight: 65 kg

DRUGS (1)
  1. LEVETIRACETAM 250MG [Suspect]
     Active Substance: LEVETIRACETAM
     Indication: SEIZURE
     Dosage: 250 MG, TWO TIMES A DAY
     Route: 048
     Dates: start: 20160801, end: 20160901

REACTIONS (4)
  - Personality change [Recovered/Resolved]
  - Poor quality sleep [Recovered/Resolved]
  - Depressed mood [Recovered/Resolved]
  - Anxiety [Recovered/Resolved]

NARRATIVE: CASE EVENT DATE: 201608
